FAERS Safety Report 11570276 (Version 1)
Quarter: 2015Q3

REPORT INFORMATION
  Report Type: Spontaneous
  Country: US (occurrence: US)
  Receive Date: 20150916
  Receipt Date: 20150916
  Transmission Date: 20151125
  Serious: No
  Sender: FDA-Public Use
  Company Number: US-ELI_LILLY_AND_COMPANY-US200909000683

PATIENT
  Age: 76 Year
  Sex: Female

DRUGS (2)
  1. NADOLOL. [Concomitant]
     Active Substance: NADOLOL
  2. FORTEO [Suspect]
     Active Substance: TERIPARATIDE

REACTIONS (5)
  - Hot flush [Unknown]
  - Feeling abnormal [Unknown]
  - Dizziness [Unknown]
  - Insomnia [Unknown]
  - Muscle spasms [Not Recovered/Not Resolved]

NARRATIVE: CASE EVENT DATE: 2009
